FAERS Safety Report 16992083 (Version 1)
Quarter: 2019Q4

REPORT INFORMATION
  Report Type: Spontaneous
  Country: US (occurrence: US)
  Receive Date: 20191105
  Receipt Date: 20191105
  Transmission Date: 20200122
  Serious: No
  Sender: FDA-Public Use
  Company Number: US-TEVA-2019-US-1131417

PATIENT
  Sex: Female

DRUGS (11)
  1. DETROL LA [Concomitant]
     Active Substance: TOLTERODINE TARTRATE
  2. LYRICA [Concomitant]
     Active Substance: PREGABALIN
  3. TOLTERODINE [Concomitant]
     Active Substance: TOLTERODINE
  4. COPAXONE [Suspect]
     Active Substance: GLATIRAMER ACETATE
     Indication: MULTIPLE SCLEROSIS
     Dosage: COPAXONE 40 MG THREE TIMES PER WEEK
     Route: 058
     Dates: start: 20170316
  5. FLUTICASONE SPR [Concomitant]
  6. SERTRALINE [Concomitant]
     Active Substance: SERTRALINE HYDROCHLORIDE
  7. VITAMIN D [Concomitant]
     Active Substance: VITAMIN D NOS
  8. DIAZEPAM. [Concomitant]
     Active Substance: DIAZEPAM
  9. HYDROCOD/BU [Concomitant]
  10. LEVOTHYROXIN [Concomitant]
     Active Substance: LEVOTHYROXINE
  11. ROSUVASTATIN. [Concomitant]
     Active Substance: ROSUVASTATIN

REACTIONS (1)
  - Chills [Not Recovered/Not Resolved]
